FAERS Safety Report 8493263-7 (Version None)
Quarter: 2012Q2

REPORT INFORMATION
  Report Type: 
  Country: None (occurrence: None)
  Receive Date: 20120628
  Receipt Date: 20120615
  Transmission Date: 20120825
  Serious: Yes (Hospitalization)
  Sender: FDA-Public Use
  Company Number: DSA_58038_2012

PATIENT
  Age: 71 Year
  Sex: Male

DRUGS (7)
  1. LEVOFLOXACIN [Suspect]
     Indication: PRODUCT USED FOR UNKNOWN INDICATION
     Dosage: (1 G QD ORAL)
     Route: 048
     Dates: start: 20120424, end: 20120430
  2. ISORYTHM [Concomitant]
  3. MICONAZOLE [Concomitant]
  4. FLAGYL [Suspect]
     Indication: PRODUCT USED FOR UNKNOWN INDICATION
     Dosage: (1 G QD ORAL)
     Route: 048
     Dates: start: 20120424, end: 20120504
  5. NEXIUM [Concomitant]
  6. CALCIPARINE [Concomitant]
  7. PREVISCAN [Concomitant]

REACTIONS (1)
  - HEPATITIS [None]
